FAERS Safety Report 21018151 (Version 1)
Quarter: 2022Q2

REPORT INFORMATION
  Report Type: Report from Study
  Country: DE (occurrence: None)
  Receive Date: 20220628
  Receipt Date: 20220628
  Transmission Date: 20220721
  Serious: Yes (Hospitalization)
  Sender: FDA-Public Use
  Company Number: DE-ROCHE-3121620

PATIENT
  Age: 63 Year
  Sex: Female
  Weight: 78 kg

DRUGS (10)
  1. ATEZOLIZUMAB [Suspect]
     Active Substance: ATEZOLIZUMAB
     Indication: Triple negative breast cancer
     Dosage: DATE OF LAST DOSE PRIOR TO SAE: 11/MAY/2022
     Route: 041
     Dates: start: 20220105
  2. PACLITAXEL [Suspect]
     Active Substance: PACLITAXEL
     Indication: Triple negative breast cancer
     Dosage: DATE OF LAST DOSE PRIOR TO SAE: 06/APR/2022
     Route: 042
     Dates: start: 20220127
  3. CYCLOPHOSPHAMIDE [Suspect]
     Active Substance: CYCLOPHOSPHAMIDE
     Indication: Triple negative breast cancer
     Dosage: DATE OF LAST DOSE PRIOR TO SAE: 11/MAY/2022
     Route: 042
     Dates: start: 20220511
  4. CARBOPLATIN [Suspect]
     Active Substance: CARBOPLATIN
     Indication: Triple negative breast cancer
     Dosage: DATE OF LAST DOSE PRIOR TO SAE: 06/APR/2022
     Route: 042
     Dates: start: 20220127
  5. EPIRUBICIN [Suspect]
     Active Substance: EPIRUBICIN
     Indication: Triple negative breast cancer
     Dosage: DATE OF LAST DOSE PRIOR TO SAE: 11/MAY/2022
     Route: 042
     Dates: start: 20220511
  6. BISOPROLOL [Concomitant]
     Active Substance: BISOPROLOL
     Dates: start: 2010
  7. FLUPREDNIDENE ACETATE [Concomitant]
     Active Substance: FLUPREDNIDENE ACETATE
     Dates: start: 20211229
  8. BISOPROLOL FUMARATE [Concomitant]
     Active Substance: BISOPROLOL FUMARATE
     Dates: start: 20220124
  9. ELIQUIS [Concomitant]
     Active Substance: APIXABAN
     Dates: start: 20220126
  10. UREA [Concomitant]
     Active Substance: UREA
     Dates: start: 20220427

REACTIONS (1)
  - Anaemia [Recovered/Resolved with Sequelae]

NARRATIVE: CASE EVENT DATE: 20220521
